FAERS Safety Report 5300505-5 (Version None)
Quarter: 2007Q2

REPORT INFORMATION
  Report Type: 
  Country: None (occurrence: None)
  Receive Date: 20070413
  Receipt Date: 20070413
  Transmission Date: 20071010
  Serious: Yes (Hospitalization)
  Sender: FDA-Public Use
  Company Number: None

PATIENT
  Sex: Male
  Weight: 106.1417 kg

DRUGS (1)
  1. INTEGRILIN [Suspect]
     Indication: CATHETERISATION CARDIAC
     Dosage: 2MCG/KG/MIN
     Dates: start: 20070410, end: 20070410

REACTIONS (3)
  - HAEMATEMESIS [None]
  - INCISION SITE HAEMORRHAGE [None]
  - PLATELET COUNT DECREASED [None]
